FAERS Safety Report 7956487-0 (Version None)
Quarter: 2011Q4

REPORT INFORMATION
  Report Type: 
  Country: None (occurrence: None)
  Receive Date: 20111201
  Receipt Date: 20111117
  Transmission Date: 20120403
  Serious: Yes (Other)
  Sender: FDA-Public Use
  Company Number: 2011AP002750

PATIENT
  Age: 45 Year
  Sex: Female

DRUGS (3)
  1. ACETAMINOPHEN [Concomitant]
  2. AMLODIPINE [Suspect]
     Indication: PRODUCT USED FOR UNKNOWN INDICATION
     Dosage: TAB;PO
     Route: 048
     Dates: start: 20111026, end: 20111102
  3. IMIDAPRIL (IMIDAPRIL) [Concomitant]

REACTIONS (4)
  - AGEUSIA [None]
  - THROAT IRRITATION [None]
  - FEELING ABNORMAL [None]
  - OEDEMA MOUTH [None]
